FAERS Safety Report 11156132 (Version 1)
Quarter: 2015Q2

REPORT INFORMATION
  Report Type: Spontaneous
  Country: FR (occurrence: FR)
  Receive Date: 20150602
  Receipt Date: 20150602
  Transmission Date: 20150821
  Serious: Yes (Other)
  Sender: FDA-Public Use
  Company Number: FR-HOSPIRA-2883125

PATIENT
  Age: 36 Year
  Sex: Female

DRUGS (1)
  1. PAMIDRONIC ACID [Suspect]
     Active Substance: PAMIDRONIC ACID
     Indication: PSORIATIC ARTHROPATHY
     Dosage: 45 MG IN 4 HOURS AT C1D1 AND 45 MG IN 4 HOURS AT C1D2
     Route: 041
     Dates: start: 20150303, end: 20150304

REACTIONS (1)
  - Phlebitis [Recovered/Resolved]

NARRATIVE: CASE EVENT DATE: 20150305
